FAERS Safety Report 16255449 (Version 1)
Quarter: 2019Q2

REPORT INFORMATION
  Report Type: Spontaneous
  Country: US (occurrence: US)
  Receive Date: 20190429
  Receipt Date: 20190429
  Transmission Date: 20190711
  Serious: Yes (Hospitalization)
  Sender: FDA-Public Use
  Company Number: None

PATIENT
  Age: 39 Year
  Sex: Male
  Weight: 120 kg

DRUGS (4)
  1. ABILIFY MAINTENA [Suspect]
     Active Substance: ARIPIPRAZOLE
     Indication: SCHIZOAFFECTIVE DISORDER
     Dosage: ?          OTHER FREQUENCY:MONTHLY;?
     Route: 030
     Dates: start: 20181228, end: 20181228
  2. HYDROCHLOROTHIAZIDE 12.5 MG [Concomitant]
     Active Substance: HYDROCHLOROTHIAZIDE
  3. ARIPIPRAZOLE 20 MG [Concomitant]
     Active Substance: ARIPIPRAZOLE
  4. OLANZAPINE 10 MG NIGHTLY [Concomitant]

REACTIONS (2)
  - Antisocial behaviour [None]
  - Hallucination [None]

NARRATIVE: CASE EVENT DATE: 20181228
